FAERS Safety Report 17225732 (Version 1)
Quarter: 2020Q1

REPORT INFORMATION
  Report Type: Spontaneous
  Country: US (occurrence: US)
  Receive Date: 20200102
  Receipt Date: 20200102
  Transmission Date: 20200409
  Serious: Yes (Other)
  Sender: FDA-Public Use
  Company Number: US-GLAXOSMITHKLINE-US2019GSK235946

PATIENT
  Age: 67 Year
  Sex: Female

DRUGS (8)
  1. LITHIUM CARBONATE. [Suspect]
     Active Substance: LITHIUM CARBONATE
     Indication: BIPOLAR II DISORDER
     Dosage: 600 MG, QD
     Dates: start: 201408
  2. MAPROTILINE [Concomitant]
     Active Substance: MAPROTILINE
     Indication: BIPOLAR II DISORDER
     Dosage: 12.5 MG, QD IN THE MORNING
  3. DIVALPROEX [Concomitant]
     Active Substance: DIVALPROEX SODIUM
     Indication: PRODUCT USED FOR UNKNOWN INDICATION
     Dosage: 500 MG, QD AT BEDTIME
     Dates: start: 201509, end: 201605
  4. NORTRIPTYLINE [Concomitant]
     Active Substance: NORTRIPTYLINE
     Dosage: 50 TO 100MG
     Dates: start: 201410
  5. LITHIUM CARBONATE. [Suspect]
     Active Substance: LITHIUM CARBONATE
     Dosage: 750 MG, QD
     Dates: start: 201509
  6. NORTRIPTYLINE [Concomitant]
     Active Substance: NORTRIPTYLINE
     Indication: BIPOLAR II DISORDER
     Dosage: 75 MG, QD AT BEDTIME
     Dates: start: 201410
  7. LAMOTRIGINE. [Suspect]
     Active Substance: LAMOTRIGINE
     Indication: DEPRESSION
     Dosage: 25 MG
  8. NORTRIPTYLINE [Concomitant]
     Active Substance: NORTRIPTYLINE
     Dosage: 50 MG
     Dates: start: 201410, end: 201507

REACTIONS (3)
  - Hypothyroidism [Unknown]
  - Drug intolerance [Unknown]
  - Blood thyroid stimulating hormone increased [Unknown]

NARRATIVE: CASE EVENT DATE: 201509
